FAERS Safety Report 9059819 (Version 1)
Quarter: 2013Q1

REPORT INFORMATION
  Report Type: Spontaneous
  Country: US (occurrence: None)
  Receive Date: 20130206
  Receipt Date: 20130206
  Transmission Date: 20140127
  Serious: Yes (Hospitalization, Other)
  Sender: FDA-Public Use
  Company Number: None

PATIENT
  Age: 77 Year
  Sex: Male
  Weight: 90.7 kg

DRUGS (2)
  1. RITUXIMAB [Suspect]
     Indication: NON-HODGKIN^S LYMPHOMA
     Dosage: EVERY 21 DAYS
     Route: 042
     Dates: start: 20111004, end: 20111004
  2. CYCLOPHOSPHAMIDE [Suspect]
     Indication: NON-HODGKIN^S LYMPHOMA
     Dosage: EVERY 21 DAYS
     Route: 042

REACTIONS (5)
  - Pyrexia [None]
  - Hypotension [None]
  - Hypoxia [None]
  - Pneumonitis [None]
  - Syncope [None]
